FAERS Safety Report 6296424-0 (Version None)
Quarter: 2009Q3

REPORT INFORMATION
  Report Type: 
  Country: None (occurrence: None)
  Receive Date: 20090803
  Receipt Date: 20090803
  Transmission Date: 20100115
  Serious: Yes (Other)
  Sender: FDA-Public Use
  Company Number: None

PATIENT
  Sex: Female
  Weight: 68.0396 kg

DRUGS (1)
  1. MERIDIA [Suspect]
     Indication: ATTENTION DEFICIT/HYPERACTIVITY DISORDER
     Dosage: 20 DAILY PO ORALLY   ON GOING FOR LIFE !
     Route: 048
     Dates: start: 20060125

REACTIONS (2)
  - AUTOIMMUNE DISORDER [None]
  - BLOOD PRESSURE INADEQUATELY CONTROLLED [None]
